FAERS Safety Report 10495609 (Version 4)
Quarter: 2015Q1

REPORT INFORMATION
  Report Type: Report from Study
  Country: VE (occurrence: VE)
  Receive Date: 20141003
  Receipt Date: 20150324
  Transmission Date: 20150720
  Serious: Yes (Other)
  Sender: FDA-Public Use
  Company Number: PHHY2014VE128596

PATIENT
  Sex: Female

DRUGS (10)
  1. SANDOSTATIN LAR DEPOT [Suspect]
     Active Substance: OCTREOTIDE ACETATE
     Indication: ACROMEGALY
     Dosage: 20 MG, EVERY 20 DAYS
     Route: 030
     Dates: start: 20121123, end: 20140916
  2. SANDOSTATIN LAR DEPOT [Suspect]
     Active Substance: OCTREOTIDE ACETATE
     Dosage: 30 MG, EVERY 20 DAYS
     Route: 030
     Dates: start: 20140916
  3. GLUCOFAGE [Concomitant]
     Indication: GLUCOSE TOLERANCE IMPAIRED
     Dosage: 1.5 G, UNK
     Route: 048
     Dates: start: 201205, end: 20140928
  4. EUTIROX [Concomitant]
     Active Substance: LEVOTHYROXINE SODIUM
     Indication: PRODUCT USED FOR UNKNOWN INDICATION
     Dosage: 150 MG, ONE DAILY
     Route: 065
     Dates: start: 2012, end: 20140928
  5. SIMPLA [Concomitant]
     Indication: OSTEOPOROSIS
     Dosage: 1 DF, QMO
     Route: 048
  6. ATACAND [Concomitant]
     Active Substance: CANDESARTAN CILEXETIL
     Indication: HYPERTENSION
     Dosage: 16 MG, QD
     Route: 048
     Dates: start: 2010, end: 20140929
  7. SANDOSTATIN LAR DEPOT [Suspect]
     Active Substance: OCTREOTIDE ACETATE
     Dosage: 30 MG, QMO
     Route: 030
  8. JANUMET [Concomitant]
     Active Substance: METFORMIN HYDROCHLORIDE\SITAGLIPTIN PHOSPHATE
     Indication: BLOOD GLUCOSE ABNORMAL
     Dosage: 1 U, QD
     Route: 065
  9. SANDOSTATIN LAR DEPOT [Suspect]
     Active Substance: OCTREOTIDE ACETATE
     Dosage: 20 MG, QMO
     Route: 030
  10. ATACAND [Concomitant]
     Active Substance: CANDESARTAN CILEXETIL
     Dosage: 1 U, QD
     Route: 065

REACTIONS (12)
  - VIIth nerve paralysis [Recovering/Resolving]
  - Blood calcium abnormal [Not Recovered/Not Resolved]
  - Monoparesis [Recovering/Resolving]
  - Arthralgia [Not Recovered/Not Resolved]
  - Dysphagia [Unknown]
  - Vocal cord disorder [Not Recovered/Not Resolved]
  - Papillary thyroid cancer [Recovered/Resolved]
  - Post procedural complication [Recovered/Resolved]
  - Choking [Unknown]
  - Blood glucose increased [Unknown]
  - Blood growth hormone increased [Not Recovered/Not Resolved]
  - Insomnia [Unknown]
